FAERS Safety Report 4479614-9 (Version None)
Quarter: 2004Q4

REPORT INFORMATION
  Report Type: 
  Country: None (occurrence: None)
  Receive Date: 20041020
  Receipt Date: 20041015
  Transmission Date: 20050328
  Serious: Yes (Hospitalization)
  Sender: FDA-Public Use
  Company Number: CA-MERCK-0410CAN00304

PATIENT
  Age: 72 Year
  Sex: Female

DRUGS (1)
  1. NOROXIN [Suspect]
     Route: 048

REACTIONS (2)
  - COMA [None]
  - HYPONATRAEMIA [None]
